FAERS Safety Report 4895523-5 (Version None)
Quarter: 2006Q1

REPORT INFORMATION
  Report Type: 
  Country: None (occurrence: None)
  Receive Date: 20060130
  Receipt Date: 20060123
  Transmission Date: 20060701
  Serious: Yes (Death)
  Sender: FDA-Public Use
  Company Number: US-SANOFI-SYNTHELABO-A03200600412

PATIENT
  Sex: Male
  Weight: 73.01 kg

DRUGS (11)
  1. PLAVIX [Suspect]
     Indication: DRUG USE FOR UNKNOWN INDICATION
     Dosage: UNK
     Route: 048
  2. ASPIRIN [Concomitant]
     Dosage: UNK
     Route: 048
  3. ATIVAN [Concomitant]
     Dosage: UNK
     Route: 048
  4. CYMBALTA [Concomitant]
     Dosage: UNK
     Route: 048
  5. LANTUS [Concomitant]
     Dosage: UNK
     Route: 048
  6. ZOCOR [Concomitant]
     Dosage: UNK
     Route: 048
  7. NOVOLOG [Concomitant]
     Dosage: UNK
     Route: 058
  8. DIOVAN [Concomitant]
     Dosage: UNK
     Route: 048
  9. LASIX [Concomitant]
     Dosage: UNK
     Route: 048
  10. CELEBREX [Concomitant]
     Dosage: UNK
     Route: 048
  11. NITROQUICK [Concomitant]
     Dosage: UNK
     Route: 060

REACTIONS (1)
  - DEATH [None]
